FAERS Safety Report 13339677 (Version 2)
Quarter: 2018Q1

REPORT INFORMATION
  Report Type: Spontaneous
  Country: IT (occurrence: IT)
  Receive Date: 20170315
  Receipt Date: 20180328
  Transmission Date: 20180508
  Serious: Yes (Other)
  Sender: FDA-Public Use
  Company Number: PHHY2017IT035557

PATIENT
  Age: 59 Year
  Sex: Female

DRUGS (2)
  1. LEVOFLOXACIN. [Suspect]
     Active Substance: LEVOFLOXACIN
     Indication: COUGH
     Dosage: UNK
     Route: 065
  2. AUGMENTIN [Concomitant]
     Active Substance: AMOXICILLIN\CLAVULANATE POTASSIUM
     Indication: BRONCHITIS
     Dosage: UNK
     Route: 048

REACTIONS (5)
  - Angioedema [Unknown]
  - Dyspnoea [Unknown]
  - Chills [Unknown]
  - Drug hypersensitivity [Unknown]
  - Dysphonia [Unknown]

NARRATIVE: CASE EVENT DATE: 20161003
